FAERS Safety Report 4817758-X (Version None)
Quarter: 2005Q3

REPORT INFORMATION
  Report Type: 
  Country: None (occurrence: None)
  Receive Date: 20050929
  Receipt Date: 20050718
  Transmission Date: 20060218
  Serious: No
  Sender: FDA-Public Use
  Company Number: 05P-163-0305973-00

PATIENT
  Age: 73 Year
  Sex: Female
  Weight: 89.8122 kg

DRUGS (13)
  1. HUMIRA [Suspect]
     Indication: RHEUMATOID ARTHRITIS
     Dosage: 40 MG, 1 IN 1 WK, SUBCUTANEOUS
     Route: 058
     Dates: start: 20040101, end: 20050701
  2. VICODIN [Concomitant]
  3. HUMULIN 70/30 [Concomitant]
  4. CRESTOR [Concomitant]
  5. ASPIRIN [Concomitant]
  6. METOPROLOL [Concomitant]
  7. CLOPIDOGREL BISULFATE [Concomitant]
  8. PREDNISONE [Concomitant]
  9. FEXOFENADINE HYDROCHLORIDE [Concomitant]
  10. FUROSEMIDE [Concomitant]
  11. TELMISARTAN [Concomitant]
  12. ASCORBIC ACID [Concomitant]
  13. FISH OIL [Concomitant]

REACTIONS (1)
  - FURUNCLE [None]
